FAERS Safety Report 21359888 (Version 1)
Quarter: 2022Q3

REPORT INFORMATION
  Report Type: Spontaneous
  Country: CA (occurrence: CA)
  Receive Date: 20220921
  Receipt Date: 20220921
  Transmission Date: 20221027
  Serious: Yes (Other)
  Sender: FDA-Public Use
  Company Number: CA-AMGEN-CANSP2022159686

PATIENT
  Age: 70 Year
  Sex: Female
  Weight: 56 kg

DRUGS (10)
  1. REPATHA [Suspect]
     Active Substance: EVOLOCUMAB
     Indication: Hypercholesterolaemia
     Dosage: 140 MILLIGRAM, Q2WK
     Route: 058
  2. ASPIRIN [Concomitant]
     Active Substance: ASPIRIN
  3. ATIVAN [Concomitant]
     Active Substance: LORAZEPAM
  4. BRILINTA [Concomitant]
     Active Substance: TICAGRELOR
  5. ESTRADIOL [Concomitant]
     Active Substance: ESTRADIOL
  6. MELATONIN [Concomitant]
     Active Substance: MELATONIN
  7. METOPROLOL [Concomitant]
     Active Substance: METOPROLOL
  8. HYDROCHLOROTHIAZIDE\OLMESARTAN MEDOXOMIL [Concomitant]
     Active Substance: HYDROCHLOROTHIAZIDE\OLMESARTAN MEDOXOMIL
  9. SYMBICORT [Concomitant]
     Active Substance: BUDESONIDE\FORMOTEROL FUMARATE DIHYDRATE
  10. VITAMIN D3 [Concomitant]
     Active Substance: CHOLECALCIFEROL

REACTIONS (2)
  - Coordination abnormal [Unknown]
  - Muscular weakness [Unknown]
